FAERS Safety Report 4679430-9 (Version None)
Quarter: 2005Q2

REPORT INFORMATION
  Report Type: 
  Country: None (occurrence: None)
  Receive Date: 20050602
  Receipt Date: 20050324
  Transmission Date: 20051028
  Serious: Yes (Other)
  Sender: FDA-Public Use
  Company Number: 2005SE01771

PATIENT
  Age: 25422 Day
  Sex: Female
  Weight: 45 kg

DRUGS (13)
  1. BLOPRESS TABLETS 8 [Suspect]
     Indication: HYPERTENSION
     Route: 048
     Dates: start: 20030304
  2. PENFILL 50R [Concomitant]
     Indication: DIABETES MELLITUS NON-INSULIN-DEPENDENT
     Route: 058
  3. PENFILL R [Concomitant]
     Indication: DIABETES MELLITUS NON-INSULIN-DEPENDENT
     Route: 058
  4. NOVOLIN R [Concomitant]
     Indication: DIABETES MELLITUS NON-INSULIN-DEPENDENT
     Route: 058
  5. NOVOLIN R [Concomitant]
     Route: 058
  6. NOVOLIN R [Concomitant]
     Route: 058
     Dates: end: 20050125
  7. NOVOLIN R [Concomitant]
     Route: 058
     Dates: start: 20050126
  8. KINEDAK [Concomitant]
     Indication: HYPOAESTHESIA
     Route: 048
     Dates: start: 20030715
  9. AMLODIN [Concomitant]
     Indication: HYPERTENSION
     Route: 048
     Dates: start: 20020111
  10. GASTER [Concomitant]
     Route: 048
     Dates: start: 20020111
  11. GLUCOBAY [Concomitant]
     Indication: DIABETES MELLITUS NON-INSULIN-DEPENDENT
     Route: 048
     Dates: start: 20021105
  12. ANTIHYPERTENSIVES [Concomitant]
     Indication: HYPERTENSION
     Route: 065
  13. CHOLESTEROL- AND TRIGLYCERIDE REDUCERS [Concomitant]
     Indication: HYPERLIPIDAEMIA
     Route: 065

REACTIONS (4)
  - ATRIAL FIBRILLATION [None]
  - BLOOD PRESSURE INADEQUATELY CONTROLLED [None]
  - CEREBRAL INFARCTION [None]
  - DIABETES MELLITUS INADEQUATE CONTROL [None]
